FAERS Safety Report 16941853 (Version 1)
Quarter: 2019Q4

REPORT INFORMATION
  Report Type: Spontaneous
  Country: US (occurrence: US)
  Receive Date: 20191021
  Receipt Date: 20191021
  Transmission Date: 20200122
  Serious: No
  Sender: FDA-Public Use
  Company Number: US-FRESENIUS KABI-FK201911470

PATIENT

DRUGS (1)
  1. OMEGAVEN [Suspect]
     Active Substance: FISH OIL
     Indication: ENTERAL NUTRITION
     Dosage: UNKNOWN
     Route: 065

REACTIONS (2)
  - Feeding intolerance [Unknown]
  - Poor weight gain neonatal [Unknown]
